FAERS Safety Report 22359551 (Version 1)
Quarter: 2023Q2

REPORT INFORMATION
  Report Type: Spontaneous
  Country: US (occurrence: None)
  Receive Date: 20230523
  Receipt Date: 20230523
  Transmission Date: 20230721
  Serious: No
  Sender: FDA-Public Use
  Company Number: None

PATIENT
  Age: 48 Year
  Sex: Female
  Weight: 111.6 kg

DRUGS (12)
  1. OFLOXACIN OPHTH SOLN [Suspect]
     Active Substance: OFLOXACIN
     Indication: Eye disorder
     Dosage: OTHER QUANTITY : 5 DROP(S);?FREQUENCY : TWICE A DAY;?
     Route: 047
     Dates: start: 20230331, end: 20230410
  2. DESVENLAFAX SUC ER [Concomitant]
  3. ATORVASTATIN [Concomitant]
     Active Substance: ATORVASTATIN
  4. CANDESARTAN [Concomitant]
     Active Substance: CANDESARTAN
  5. SPIRONOLACTONE [Concomitant]
     Active Substance: SPIRONOLACTONE
  6. METFORMIN [Concomitant]
     Active Substance: METFORMIN HYDROCHLORIDE
  7. MOUNJARO [Concomitant]
     Active Substance: TIRZEPATIDE
  8. LORAZEPAM [Concomitant]
     Active Substance: LORAZEPAM
  9. ACCUTANE [Concomitant]
     Active Substance: ISOTRETINOIN
  10. DEVICE [Concomitant]
     Active Substance: DEVICE
  11. STOOL SOFTENER (DOCUSATE) [Concomitant]
     Active Substance: DOCUSATE
  12. VITAMINS [Concomitant]
     Active Substance: VITAMINS

REACTIONS (3)
  - Pyrexia [None]
  - Lacrimation increased [None]
  - Eye allergy [None]

NARRATIVE: CASE EVENT DATE: 20230405
